FAERS Safety Report 5375480-8 (Version None)
Quarter: 2007Q2

REPORT INFORMATION
  Report Type: 
  Country: None (occurrence: None)
  Receive Date: 20070629
  Receipt Date: 20070618
  Transmission Date: 20071010
  Serious: Yes (Hospitalization, Other)
  Sender: FDA-Public Use
  Company Number: CA-ABBOTT-07P-028-0368211-00

PATIENT
  Sex: Male
  Weight: 111 kg

DRUGS (1)
  1. HUMIRA [Suspect]
     Indication: RHEUMATOID ARTHRITIS
     Route: 058
     Dates: start: 20051117

REACTIONS (3)
  - ARTHROPATHY [None]
  - OSTEOARTHRITIS [None]
  - SWELLING [None]
